FAERS Safety Report 21420216 (Version 1)
Quarter: 2022Q4

REPORT INFORMATION
  Report Type: Spontaneous
  Country: ES (occurrence: ES)
  Receive Date: 20221007
  Receipt Date: 20221007
  Transmission Date: 20230113
  Serious: Yes (Hospitalization, Other)
  Sender: FDA-Public Use
  Company Number: ES-AEMPS-1266123

PATIENT
  Age: 49 Year
  Sex: Female

DRUGS (2)
  1. MEROPENEM [Suspect]
     Active Substance: MEROPENEM
     Indication: Gallbladder obstruction
     Dosage: 2 GRAM, 3 TIMES A DAY
     Route: 042
     Dates: start: 20220515, end: 20220519
  2. YESCARTA [Suspect]
     Active Substance: AXICABTAGENE CILOLEUCEL
     Indication: Follicular lymphoma
     Dosage: 0.4-2E8 CART CELLS EN VOL DE 68 ML
     Route: 042
     Dates: start: 20220504, end: 20220504

REACTIONS (2)
  - Encephalopathy [Recovered/Resolved]
  - Myoclonus [Recovered/Resolved]

NARRATIVE: CASE EVENT DATE: 20220518
